FAERS Safety Report 6910081-9 (Version None)
Quarter: 2010Q3

REPORT INFORMATION
  Report Type: 
  Country: None (occurrence: None)
  Receive Date: 20100806
  Receipt Date: 20100730
  Transmission Date: 20110219
  Serious: Yes (Other)
  Sender: FDA-Public Use
  Company Number: US-JNJFOC-20100507788

PATIENT
  Sex: Male
  Weight: 117.48 kg

DRUGS (3)
  1. LEVAQUIN [Suspect]
     Indication: PNEUMONIA
     Dosage: LEVOFLOXACIN INFUSION
     Route: 042
  2. ANTIBIOTICS, NOS [Suspect]
     Indication: PNEUMONIA
     Route: 042
  3. UNKNOWN MEDICATION [Concomitant]
     Indication: PRODUCT USED FOR UNKNOWN INDICATION

REACTIONS (6)
  - BURNING SENSATION [None]
  - INJECTION SITE EXTRAVASATION [None]
  - NERVE INJURY [None]
  - OEDEMA PERIPHERAL [None]
  - PAIN IN EXTREMITY [None]
  - TOXIC NEUROPATHY [None]
